FAERS Safety Report 6450581-1 (Version None)
Quarter: 2009Q4

REPORT INFORMATION
  Report Type: 
  Country: None (occurrence: None)
  Receive Date: 20091123
  Receipt Date: 20091117
  Transmission Date: 20100525
  Serious: Yes (Death, Life-Threatening, Hospitalization)
  Sender: FDA-Public Use
  Company Number: DE-ASTRAZENECA-2009SE27048

PATIENT
  Age: 87 Year
  Sex: Male

DRUGS (16)
  1. BELOC-ZOK [Suspect]
     Route: 048
  2. BENALAPRIL [Suspect]
     Route: 048
     Dates: end: 20080116
  3. BENALAPRIL [Suspect]
     Route: 048
     Dates: start: 20080117, end: 20080117
  4. BENALAPRIL [Suspect]
     Route: 048
     Dates: start: 20080125, end: 20080207
  5. ASPIRIN [Suspect]
     Route: 048
  6. TORASEMIDE [Suspect]
     Route: 048
  7. PANTOZOL [Suspect]
     Route: 048
     Dates: end: 20080124
  8. RISPERDAL [Suspect]
     Route: 048
     Dates: end: 20080117
  9. HALDOL [Suspect]
     Route: 048
     Dates: start: 20080119, end: 20080122
  10. HALDOL [Suspect]
     Route: 048
     Dates: start: 20080123
  11. DOMINAL [Suspect]
     Route: 048
     Dates: start: 20080115, end: 20080117
  12. DOMINAL [Suspect]
     Route: 048
     Dates: start: 20080118, end: 20080120
  13. DOMINAL [Suspect]
     Route: 048
     Dates: start: 20080121, end: 20080121
  14. DOMINAL [Suspect]
     Route: 048
     Dates: start: 20080122, end: 20080206
  15. DOMINAL [Suspect]
     Route: 048
     Dates: start: 20080207, end: 20080207
  16. MELNEURIN [Suspect]
     Route: 048
     Dates: start: 20080118, end: 20080206

REACTIONS (2)
  - DEATH [None]
  - HYPOTENSION [None]
